FAERS Safety Report 8621995-6 (Version None)
Quarter: 2012Q3

REPORT INFORMATION
  Report Type: 
  Country: None (occurrence: None)
  Receive Date: 20120823
  Receipt Date: 20120823
  Transmission Date: 20120928
  Serious: Yes (Life-Threatening, Other)
  Sender: FDA-Public Use
  Company Number: None

PATIENT
  Age: 3 Year
  Sex: Male
  Weight: 16.7831 kg

DRUGS (1)
  1. FENTANYL [Suspect]
     Indication: PAIN
     Dosage: IV BOLUS
     Route: 040
     Dates: start: 20120817, end: 20120821

REACTIONS (4)
  - OEDEMA PERIPHERAL [None]
  - LETHARGY [None]
  - BLISTER [None]
  - SOMNOLENCE [None]
